FAERS Safety Report 4530451-6 (Version None)
Quarter: 2004Q4

REPORT INFORMATION
  Report Type: 
  Country: None (occurrence: None)
  Receive Date: 20041215
  Receipt Date: 20041213
  Transmission Date: 20050328
  Serious: No
  Sender: FDA-Public Use
  Company Number: 003722

PATIENT
  Age: 33 Year
  Sex: Female
  Weight: 54.4 kg

DRUGS (3)
  1. TREXAL (METHOTREXATE)TABLET, 7.5MG [Suspect]
     Indication: RHEUMATOID ARTHRITIS
     Dosage: 15.00 MG, 1/WEEK, ORAL
     Route: 048
     Dates: start: 20000101, end: 20041205
  2. LEUCOVORIN CALCIUM [Concomitant]
  3. SEASONALE (LEVONORGESTREL, ETHINYLESTRADIOL) [Concomitant]

REACTIONS (4)
  - BARTHOLINITIS [None]
  - VAGINAL DISCHARGE [None]
  - VAGINAL MYCOSIS [None]
  - VAGINAL PAIN [None]
